FAERS Safety Report 9983616 (Version 1)
Quarter: 2014Q1

REPORT INFORMATION
  Report Type: Report from Study
  Country: US (occurrence: US)
  Receive Date: 20140307
  Receipt Date: 20140307
  Transmission Date: 20141002
  Serious: Yes (Hospitalization)
  Sender: FDA-Public Use
  Company Number: US-JNJFOC-20140301297

PATIENT
  Age: 31 Year
  Sex: Female
  Weight: 75.75 kg

DRUGS (2)
  1. REMICADE [Suspect]
     Indication: CROHN^S DISEASE
     Route: 042
     Dates: start: 2012, end: 201212
  2. REMICADE [Suspect]
     Indication: CROHN^S DISEASE
     Route: 042
     Dates: start: 201212, end: 201312

REACTIONS (4)
  - Dehydration [Unknown]
  - Pain [Unknown]
  - Fistula [Unknown]
  - Drug ineffective [Unknown]
